FAERS Safety Report 5430368-9 (Version None)
Quarter: 2007Q3

REPORT INFORMATION
  Report Type: 
  Country: None (occurrence: None)
  Receive Date: 20070828
  Receipt Date: 20070813
  Transmission Date: 20080115
  Serious: Yes (Other)
  Sender: FDA-Public Use
  Company Number: 2007RR-09333

PATIENT
  Age: 42 Year
  Sex: Female

DRUGS (5)
  1. CLARITHROMYCIN [Suspect]
     Dosage: G, ORAL
     Route: 048
  2. COLCHICUM JTL LIQ [Suspect]
  3. NIFLUMIC ACID (NIFLUMIC ACID) [Suspect]
     Dosage: RECTAL
     Route: 054
  4. DICLOFENAC SODIUM TABLETS 25MG (DICLOFENAC) UNKNOWN [Suspect]
     Dosage: TOPICAL
     Route: 061
  5. LEUPRORELIN (LEUPRORELIN) [Concomitant]

REACTIONS (5)
  - ACUTE RESPIRATORY DISTRESS SYNDROME [None]
  - AGRANULOCYTOSIS [None]
  - PANCYTOPENIA [None]
  - RENAL FAILURE ACUTE [None]
  - THROMBOCYTOPENIA [None]
